FAERS Safety Report 25185560 (Version 3)
Quarter: 2025Q2

REPORT INFORMATION
  Report Type: Spontaneous
  Country: JP (occurrence: JP)
  Receive Date: 20250410
  Receipt Date: 20250619
  Transmission Date: 20250717
  Serious: Yes (Other)
  Sender: AMGEN
  Company Number: JP-DSJP-DS-2025-134525-

PATIENT
  Age: 67 Year
  Sex: Female

DRUGS (1)
  1. BEVACIZUMAB [Suspect]
     Active Substance: BEVACIZUMAB
     Indication: Product used for unknown indication
     Route: 065
     Dates: start: 20250314

REACTIONS (1)
  - Small intestinal perforation [Unknown]

NARRATIVE: CASE EVENT DATE: 20250319
